FAERS Safety Report 6034783-4 (Version None)
Quarter: 2009Q1

REPORT INFORMATION
  Report Type: 
  Country: None (occurrence: None)
  Receive Date: 20090109
  Receipt Date: 20090109
  Transmission Date: 20090719
  Serious: Yes (Life-Threatening, Hospitalization)
  Sender: FDA-Public Use
  Company Number: None

PATIENT
  Sex: Female
  Weight: 50.2 kg

DRUGS (9)
  1. CEFAZOLIN [Suspect]
     Indication: PROPHYLAXIS
     Dosage: 1 GRAM PREOP OTO- IV BOLUS
     Route: 040
  2. ZOFRAN [Concomitant]
  3. LOPRESSOR [Concomitant]
  4. ISOFLURANE [Concomitant]
  5. SUCCINYLCHOLINE [Concomitant]
  6. ROCURONIUM BROMIDE [Concomitant]
  7. FENTANYL [Concomitant]
  8. MIDAZOLAM HCL [Concomitant]
  9. PROPOFOL [Concomitant]

REACTIONS (4)
  - ANAPHYLACTIC REACTION [None]
  - HYPOTENSION [None]
  - RASH ERYTHEMATOUS [None]
  - RASH MACULAR [None]
